FAERS Safety Report 19349503 (Version 1)
Quarter: 2021Q2

REPORT INFORMATION
  Report Type: Spontaneous
  Country: US (occurrence: US)
  Receive Date: 20210531
  Receipt Date: 20210531
  Transmission Date: 20210717
  Serious: No
  Sender: FDA-Public Use
  Company Number: None

PATIENT
  Sex: Female
  Weight: 58.5 kg

DRUGS (8)
  1. HRT [Concomitant]
     Active Substance: UNSPECIFIED INGREDIENT
  2. LUTEIN [Concomitant]
     Active Substance: LUTEIN
  3. CELEXA [Concomitant]
     Active Substance: CITALOPRAM HYDROBROMIDE
  4. CALCIUM AND MAGNESIUM [Concomitant]
     Active Substance: CALCIUM\MAGNESIUM
  5. ZEAXANTHIN [Concomitant]
     Active Substance: ZEAXANTHIN
  6. FLUCINOLONE ACETONIDE TOPICAL OIL, 0.01% [Suspect]
     Active Substance: FLUOCINOLONE ACETONIDE
     Indication: PSORIASIS
     Dosage: ?          OTHER STRENGTH:N/A;?
     Route: 061
     Dates: start: 20210527, end: 20210529
  7. LIALDA [Concomitant]
     Active Substance: MESALAMINE
  8. VITAMIN D [Concomitant]
     Active Substance: VITAMIN D NOS

REACTIONS (5)
  - Feeling hot [None]
  - Swelling face [None]
  - Psoriasis [None]
  - Pruritus [None]
  - Erythema [None]

NARRATIVE: CASE EVENT DATE: 20210529
